FAERS Safety Report 7034055-5 (Version None)
Quarter: 2010Q4

REPORT INFORMATION
  Report Type: 
  Country: None (occurrence: None)
  Receive Date: 20101006
  Receipt Date: 20100921
  Transmission Date: 20110411
  Serious: Yes (Hospitalization, Other)
  Sender: FDA-Public Use
  Company Number: VAL_00462_2010

PATIENT
  Sex: Female

DRUGS (2)
  1. ROCALTROL [Suspect]
     Indication: PRODUCT USED FOR UNKNOWN INDICATION
     Dosage: (8 DF QD), (DF)
     Dates: end: 20100901
  2. ROCALTROL [Suspect]
     Indication: PRODUCT USED FOR UNKNOWN INDICATION
     Dosage: (8 DF QD), (DF)
     Dates: start: 20100901

REACTIONS (2)
  - GASTROINTESTINAL DISORDER [None]
  - RENAL IMPAIRMENT [None]
